FAERS Safety Report 8152126-7 (Version None)
Quarter: 2012Q1

REPORT INFORMATION
  Report Type: 
  Country: None (occurrence: None)
  Receive Date: 20120221
  Receipt Date: 20120217
  Transmission Date: 20120608
  Serious: Yes (Hospitalization, Other)
  Sender: FDA-Public Use
  Company Number: BR-PFIZER INC-2012042933

PATIENT
  Age: 66 Year
  Sex: Female

DRUGS (2)
  1. GEODON [Suspect]
     Dosage: 40 MG, UNK
     Route: 048
  2. GEODON [Suspect]
     Dosage: 80 MG, 2X/DAY
     Route: 048

REACTIONS (3)
  - PYREXIA [None]
  - RENAL IMPAIRMENT [None]
  - INFECTION [None]
